FAERS Safety Report 9928279 (Version 1)
Quarter: 2014Q1

REPORT INFORMATION
  Report Type: Spontaneous
  Country: SA (occurrence: SA)
  Receive Date: 20140227
  Receipt Date: 20140227
  Transmission Date: 20141002
  Serious: Yes (Life-Threatening, Other)
  Sender: FDA-Public Use
  Company Number: PHHY2014SA019697

PATIENT
  Age: 61 Year
  Sex: Male

DRUGS (1)
  1. TIZANIDINE [Suspect]
     Dosage: UNK UKN, UNK

REACTIONS (2)
  - Drowning [Not Recovered/Not Resolved]
  - Hallucination [Not Recovered/Not Resolved]
